FAERS Safety Report 25613255 (Version 1)
Quarter: 2025Q3

REPORT INFORMATION
  Report Type: Spontaneous
  Country: US (occurrence: None)
  Receive Date: 20250727
  Receipt Date: 20250727
  Transmission Date: 20251021
  Serious: Yes (Other)
  Sender: FDA-CTU
  Company Number: None

PATIENT
  Age: 31 Year
  Sex: Female
  Weight: 63 kg

DRUGS (2)
  1. COSMETICS [Suspect]
     Active Substance: COSMETICS
     Indication: Tattoo
     Dates: start: 20250712
  2. HYDROCORTISONE [Suspect]
     Active Substance: HYDROCORTISONE

REACTIONS (11)
  - Rash [None]
  - Skin disorder [None]
  - Application site erythema [None]
  - Application site rash [None]
  - Expired product administered [None]
  - Application site swelling [None]
  - Application site vesicles [None]
  - Application site warmth [None]
  - Application site scar [None]
  - Application site discharge [None]
  - Application site pruritus [None]

NARRATIVE: CASE EVENT DATE: 20250712
